FAERS Safety Report 8501144-5 (Version None)
Quarter: 2012Q3

REPORT INFORMATION
  Report Type: 
  Country: None (occurrence: None)
  Receive Date: 20120710
  Receipt Date: 20120706
  Transmission Date: 20120928
  Serious: No
  Sender: FDA-Public Use
  Company Number: US-BAYER-2012-068168

PATIENT
  Age: 19 Year
  Sex: Female

DRUGS (2)
  1. BEYAZ [Suspect]
     Indication: CONTRACEPTION
     Dosage: UNK
     Route: 048
     Dates: start: 20111101
  2. BEYAZ [Suspect]
     Indication: ACNE

REACTIONS (4)
  - METRORRHAGIA [None]
  - HORMONE LEVEL ABNORMAL [None]
  - NO ADVERSE EVENT [None]
  - MENORRHAGIA [None]
